FAERS Safety Report 9177892 (Version 2)
Quarter: 2013Q2

REPORT INFORMATION
  Report Type: Spontaneous
  Country: US (occurrence: US)
  Receive Date: 20121010
  Receipt Date: 20130415
  Transmission Date: 20140414
  Serious: Yes (Congenital Anomaly, Other)
  Sender: FDA-Public Use
  Company Number: US-RB-045307-12

PATIENT
  Age: 0 None
  Sex: Female

DRUGS (5)
  1. SUBOXONE TABLETS [Suspect]
     Indication: DRUG DEPENDENCE
     Dosage: 0.5 MG TO 1 MG DAILY/ 8 AND 2 MG TABLETS
     Route: 064
     Dates: start: 201008, end: 20110525
  2. SUBOXONE TABLETS [Suspect]
     Dosage: 0.5 MG TO 1 MG DAILY
     Route: 063
     Dates: start: 201106, end: 201107
  3. PRENATAL VITAMINS [Suspect]
     Indication: PREGNANCY
     Dosage: 1 DAILY
     Route: 064
     Dates: start: 2010, end: 20110525
  4. HYDROCODONE [Suspect]
     Indication: PROCEDURAL PAIN
     Dosage: UNKNOWN DOSAGE DETAILS
     Route: 063
     Dates: start: 20110525, end: 201106
  5. NICOTINE [Suspect]
     Indication: NICOTINE DEPENDENCE
     Dosage: 5-10 CIGARETTES DAILY
     Route: 064
     Dates: start: 201008, end: 20110525

REACTIONS (4)
  - Foetal exposure during pregnancy [Recovered/Resolved]
  - Umbilical cord abnormality [Recovered/Resolved]
  - Congenital vesicoureteric reflux [Recovering/Resolving]
  - Exposure during breast feeding [Recovered/Resolved]
